FAERS Safety Report 7484138-0 (Version None)
Quarter: 2011Q2

REPORT INFORMATION
  Report Type: 
  Country: None (occurrence: None)
  Receive Date: 20110517
  Receipt Date: 20110511
  Transmission Date: 20111010
  Serious: Yes (Hospitalization, Other)
  Sender: FDA-Public Use
  Company Number: US-BAYER-200712588BWH

PATIENT
  Age: 85 Year
  Sex: Female

DRUGS (10)
  1. NEXAVAR [Suspect]
     Dosage: 200 MG BID EVERY OTHER DAY
     Route: 048
     Dates: start: 20100407
  2. BLOOD PRESSURE MEDICATION (NOS) [Concomitant]
  3. NEXAVAR [Suspect]
     Route: 048
     Dates: start: 20090207, end: 20090207
  4. NEXAVAR [Suspect]
     Dosage: 200 MG, QOD
     Dates: end: 20110418
  5. NEXAVAR [Suspect]
     Route: 048
     Dates: start: 20090501
  6. NEXAVAR [Suspect]
     Dosage: 400 MG, QOD
     Dates: end: 20110418
  7. NEXAVAR [Suspect]
     Indication: METASTATIC RENAL CELL CARCINOMA
     Route: 048
     Dates: start: 20070730, end: 20090130
  8. NEXAVAR [Suspect]
     Route: 048
     Dates: start: 20090209, end: 20090209
  9. NEXAVAR [Suspect]
     Dosage: 400 MG BID EVERY OTHER DAY
     Route: 048
  10. NEXAVAR [Suspect]
     Dosage: 400 MG BID EVERY OTHER DAY
     Route: 048

REACTIONS (20)
  - EYE PRURITUS [None]
  - FLUID RETENTION [None]
  - CONSTIPATION [None]
  - DIARRHOEA [None]
  - CARDIAC FAILURE CONGESTIVE [None]
  - WEIGHT DECREASED [None]
  - HAEMOGLOBIN DECREASED [None]
  - ALOPECIA [None]
  - ASTHENIA [None]
  - RASH PRURITIC [None]
  - FATIGUE [None]
  - RASH GENERALISED [None]
  - SKIN BURNING SENSATION [None]
  - ANAEMIA [None]
  - BRONCHITIS [None]
  - DEHYDRATION [None]
  - PRURITUS [None]
  - BLOOD PRESSURE SYSTOLIC INCREASED [None]
  - RASH [None]
  - RASH ERYTHEMATOUS [None]
